FAERS Safety Report 16460314 (Version 1)
Quarter: 2019Q2

REPORT INFORMATION
  Report Type: Spontaneous
  Country: US (occurrence: US)
  Receive Date: 20190620
  Receipt Date: 20190620
  Transmission Date: 20190711
  Serious: Yes (Hospitalization)
  Sender: FDA-Public Use
  Company Number: US-MYLANLABS-2019M1057646

PATIENT
  Age: 45 Year
  Sex: Male

DRUGS (3)
  1. PHENYLEPHRINE [Concomitant]
     Active Substance: PHENYLEPHRINE\PHENYLEPHRINE HYDROCHLORIDE
     Indication: HYPOTENSION
     Route: 050
  2. ESMOLOL [Suspect]
     Active Substance: ESMOLOL HYDROCHLORIDE
     Dosage: ADJUSTED TO 300 UG/KG/MIN
     Route: 050
  3. ESMOLOL [Suspect]
     Active Substance: ESMOLOL HYDROCHLORIDE
     Indication: TACHYARRHYTHMIA
     Dosage: INITIAL DOSE UNKNOWN
     Route: 050

REACTIONS (1)
  - Drug ineffective [Unknown]
